FAERS Safety Report 9936701 (Version 1)
Quarter: 2014Q1

REPORT INFORMATION
  Report Type: Spontaneous
  Country: US (occurrence: US)
  Receive Date: 20140228
  Receipt Date: 20140228
  Transmission Date: 20141002
  Serious: No
  Sender: FDA-Public Use
  Company Number: US-B.I. PHARMACEUTICALS,INC./RIDGEFIELD-2014-BI-07309PF

PATIENT
  Sex: Female

DRUGS (7)
  1. SPIRIVA [Suspect]
     Indication: PRODUCT USED FOR UNKNOWN INDICATION
     Route: 065
  2. LYRICA [Concomitant]
     Dosage: 150 MG
     Route: 065
     Dates: start: 20140215
  3. GEODON [Concomitant]
     Route: 065
  4. ESTRADIOL [Concomitant]
     Route: 065
  5. SERTRALINE [Concomitant]
     Route: 065
  6. ADVAIR [Concomitant]
     Route: 065
  7. SINGULAR [Concomitant]
     Route: 065

REACTIONS (1)
  - Drug hypersensitivity [Unknown]
